FAERS Safety Report 8107647-X (Version None)
Quarter: 2012Q1

REPORT INFORMATION
  Report Type: 
  Country: None (occurrence: None)
  Receive Date: 20120202
  Receipt Date: 20120126
  Transmission Date: 20120608
  Serious: Yes (Other)
  Sender: FDA-Public Use
  Company Number: US-TEVA-319447USA

PATIENT
  Sex: Male

DRUGS (1)
  1. CLARAVIS [Suspect]
     Indication: ACNE
     Dosage: 40 MILLIGRAM;
     Route: 048
     Dates: start: 20120120, end: 20120123

REACTIONS (4)
  - SUICIDAL IDEATION [None]
  - HALLUCINATIONS, MIXED [None]
  - DEPRESSION [None]
  - CRYING [None]
